FAERS Safety Report 19106438 (Version 2)
Quarter: 2021Q2

REPORT INFORMATION
  Report Type: Report from Study
  Country: US (occurrence: US)
  Receive Date: 20210408
  Receipt Date: 20210510
  Transmission Date: 20210717
  Serious: Yes (Death)
  Sender: FDA-Public Use
  Company Number: US-ACCORD-222233

PATIENT
  Age: 47 Year
  Sex: Female

DRUGS (4)
  1. FLUVOXAMINE [Concomitant]
     Active Substance: FLUVOXAMINE
     Indication: DEPRESSION
     Route: 048
     Dates: start: 20191024, end: 20210129
  2. DEPAKOTE [Concomitant]
     Active Substance: DIVALPROEX SODIUM
     Indication: AFFECTIVE DISORDER
     Dosage: SPLIT
     Dates: start: 20080811, end: 20210129
  3. CLOZAPINE ACCORD [Suspect]
     Active Substance: CLOZAPINE
     Indication: SCHIZOAFFECTIVE DISORDER
     Route: 048
     Dates: start: 20080811, end: 20210129
  4. BENZATROPINE [Concomitant]
     Active Substance: BENZTROPINE
     Indication: SALIVARY HYPERSECRETION
     Dosage: SPLIT BID
     Dates: start: 20170623, end: 20210129

REACTIONS (1)
  - Death [Fatal]

NARRATIVE: CASE EVENT DATE: 20210129
